FAERS Safety Report 22021297 (Version 2)
Quarter: 2023Q1

REPORT INFORMATION
  Report Type: Spontaneous
  Country: US (occurrence: US)
  Receive Date: 20230222
  Receipt Date: 20230222
  Transmission Date: 20230418
  Serious: Yes (Other)
  Sender: FDA-Public Use
  Company Number: US-PFIZER INC-202300071837

PATIENT
  Age: 68 Year
  Sex: Female
  Weight: 78.93 kg

DRUGS (2)
  1. IBRANCE [Suspect]
     Active Substance: PALBOCICLIB
     Indication: Breast cancer stage IV
     Dosage: 125 MG, CYCLIC (ON FOR THREE WEEKS, OFF A WEEK AND BACK ON IT.)
     Dates: start: 202102, end: 202206
  2. IBRANCE [Suspect]
     Active Substance: PALBOCICLIB
     Dosage: 100 MG, CYCLIC (100MG, ON FOR THREE WEEKS, OFF A WEEK AND BACK ON IT)
     Dates: start: 202206, end: 20230213

REACTIONS (5)
  - Nephrolithiasis [Recovering/Resolving]
  - Renal impairment [Unknown]
  - Full blood count abnormal [Unknown]
  - Blood pressure decreased [Unknown]
  - Fatigue [Unknown]

NARRATIVE: CASE EVENT DATE: 20221201
